FAERS Safety Report 5689696-4 (Version None)
Quarter: 2008Q1

REPORT INFORMATION
  Report Type: 
  Country: None (occurrence: None)
  Receive Date: 20080328
  Receipt Date: 20080312
  Transmission Date: 20080703
  Serious: Yes (Hospitalization)
  Sender: FDA-Public Use
  Company Number: DSA_31607_2008

PATIENT
  Age: 39 Year
  Sex: Male

DRUGS (3)
  1. ORFIDAL (ORFIDAL - LORAZEPAM) 1 MG [Suspect]
     Indication: ANXIETY
     Dosage: 1 MG QD ORAL
     Route: 048
     Dates: start: 20070507, end: 20070517
  2. TRANKIMAZIN (TRANKIMAZIN - ALPRAZOLAM) [Suspect]
     Indication: ANXIETY
     Dosage: 0.25 MG 1X/3 DAYS ORAL
     Route: 048
     Dates: start: 20070507, end: 20070517
  3. VENLAFAXINE HCL [Concomitant]

REACTIONS (1)
  - HEPATITIS CHOLESTATIC [None]
